FAERS Safety Report 6902703-3 (Version None)
Quarter: 2010Q3

REPORT INFORMATION
  Report Type: 
  Country: None (occurrence: None)
  Receive Date: 20100803
  Receipt Date: 20080619
  Transmission Date: 20110219
  Serious: No
  Sender: FDA-Public Use
  Company Number: US-PFIZER INC-2008052506

PATIENT
  Sex: Male
  Weight: 87.1 kg

DRUGS (1)
  1. LYRICA [Suspect]
     Indication: NEUROPATHY PERIPHERAL
     Route: 048
     Dates: start: 20080612, end: 20080615

REACTIONS (14)
  - ABDOMINAL PAIN UPPER [None]
  - ADVERSE DRUG REACTION [None]
  - ASTHENIA [None]
  - CHEST PAIN [None]
  - EYELID PAIN [None]
  - HEADACHE [None]
  - JOINT SWELLING [None]
  - MUSCULOSKELETAL PAIN [None]
  - MYALGIA [None]
  - NECK PAIN [None]
  - OROPHARYNGEAL PAIN [None]
  - PAIN [None]
  - PAIN IN EXTREMITY [None]
  - PAIN IN JAW [None]
